FAERS Safety Report 23683888 (Version 1)
Quarter: 2024Q1

REPORT INFORMATION
  Report Type: Spontaneous
  Country: US (occurrence: None)
  Receive Date: 20240328
  Receipt Date: 20240328
  Transmission Date: 20240409
  Serious: No
  Sender: FDA-Public Use
  Company Number: None

PATIENT
  Age: 69 Year
  Sex: Female
  Weight: 76.5 kg

DRUGS (11)
  1. TRAZODONE [Suspect]
     Active Substance: TRAZODONE HYDROCHLORIDE
     Indication: Sleep disorder
  2. THYROID [Concomitant]
     Active Substance: LEVOTHYROXINE\LIOTHYRONINE
  3. LISINOPRIL [Concomitant]
     Active Substance: LISINOPRIL
  4. ATENOLOL [Concomitant]
     Active Substance: ATENOLOL
  5. lorezapam [Concomitant]
  6. Amla powder [Concomitant]
  7. synbiotic 365 [Concomitant]
  8. GARLIC [Concomitant]
     Active Substance: GARLIC
  9. GTF CHROMIUM [Concomitant]
  10. HERBALS\TURMERIC [Concomitant]
     Active Substance: HERBALS\TURMERIC
  11. D [Concomitant]

REACTIONS (6)
  - Dizziness [None]
  - Muscle twitching [None]
  - Myalgia [None]
  - Bone pain [None]
  - Myalgia [None]
  - Joint swelling [None]

NARRATIVE: CASE EVENT DATE: 20240106
